FAERS Safety Report 5360144-7 (Version None)
Quarter: 2007Q2

REPORT INFORMATION
  Report Type: 
  Country: None (occurrence: None)
  Receive Date: 20070618
  Receipt Date: 20070606
  Transmission Date: 20071010
  Serious: Yes (Other)
  Sender: FDA-Public Use
  Company Number: PHHO2007JP08402

PATIENT
  Age: 54 Year
  Sex: Female
  Weight: 45 kg

DRUGS (11)
  1. CLOZAPINE [Suspect]
     Indication: SCHIZOPHRENIA
     Dosage: 300 MG, QD
     Dates: start: 20070503, end: 20070509
  2. CLOZAPINE [Suspect]
     Dosage: 275 MG, QD
     Route: 048
     Dates: start: 20070510, end: 20070513
  3. CLOZAPINE [Suspect]
     Dosage: FROM 12.5MG UP TO 425MG/DAILY
     Route: 048
     Dates: start: 20061109, end: 20070201
  4. CLOZAPINE [Suspect]
     Dosage: REDUCING DOWN FROM 425MG
     Route: 048
     Dates: start: 20070201, end: 20070426
  5. CLOZAPINE [Suspect]
     Dosage: 350 MG - 325MG/DAY
     Route: 048
     Dates: start: 20070427, end: 20070502
  6. LIMAS [Concomitant]
  7. RIVOTRIL [Concomitant]
  8. VALERIN [Concomitant]
  9. CALCIUM LACTATE [Concomitant]
  10. WYPAX [Concomitant]
  11. HORIZON [Concomitant]

REACTIONS (26)
  - ANTIPSYCHOTIC DRUG LEVEL INCREASED [None]
  - BACTERIAL INFECTION [None]
  - BLADDER CATHETERISATION [None]
  - BLOOD CREATININE INCREASED [None]
  - BLOOD UREA INCREASED [None]
  - C-REACTIVE PROTEIN INCREASED [None]
  - DEPRESSED LEVEL OF CONSCIOUSNESS [None]
  - DISORIENTATION [None]
  - DYSARTHRIA [None]
  - GAIT DISTURBANCE [None]
  - GRIP STRENGTH DECREASED [None]
  - HAEMATOCHEZIA [None]
  - HEAD DISCOMFORT [None]
  - INCONTINENCE [None]
  - INFLAMMATION [None]
  - MALAISE [None]
  - NEPHRITIC SYNDROME [None]
  - ORAL INTAKE REDUCED [None]
  - RENAL DISORDER [None]
  - RENAL FUNCTION TEST ABNORMAL [None]
  - SEDATION [None]
  - SOMNOLENCE [None]
  - TREMOR [None]
  - URINARY TRACT INFECTION [None]
  - WHITE BLOOD CELL COUNT INCREASED [None]
  - WHITE BLOOD CELLS URINE POSITIVE [None]
